FAERS Safety Report 16300997 (Version 3)
Quarter: 2019Q2

REPORT INFORMATION
  Report Type: Spontaneous
  Country: US (occurrence: US)
  Receive Date: 20190510
  Receipt Date: 20190516
  Transmission Date: 20190711
  Serious: Yes (Other)
  Sender: FDA-Public Use
  Company Number: US-PFIZER INC-2018483598

PATIENT
  Age: 83 Year

DRUGS (1)
  1. VIAGRA [Suspect]
     Active Substance: SILDENAFIL CITRATE
     Indication: ERECTILE DYSFUNCTION
     Dosage: 100 MG, 1 TABLET 1 HOUR BEFORE SEXUAL ACTIVITY OR AS DIRECTED BY PHYSICIAN]

REACTIONS (1)
  - Throat cancer [Recovering/Resolving]
